FAERS Safety Report 23178832 (Version 1)
Quarter: 2023Q4

REPORT INFORMATION
  Report Type: Spontaneous
  Country: CN (occurrence: CN)
  Receive Date: 20231113
  Receipt Date: 20231113
  Transmission Date: 20240110
  Serious: Yes (Hospitalization)
  Sender: FDA-Public Use
  Company Number: CN-Eisai-EC-2023-152358

PATIENT
  Age: 49 Year
  Sex: Female

DRUGS (3)
  1. HALAVEN [Suspect]
     Active Substance: ERIBULIN MESYLATE
     Indication: Breast cancer
     Route: 042
     Dates: start: 20230602
  2. TISLELIZUMAB [Suspect]
     Active Substance: TISLELIZUMAB
     Indication: Breast cancer
     Route: 042
     Dates: start: 20230602
  3. APATINIB [Suspect]
     Active Substance: APATINIB
     Indication: Breast cancer
     Route: 048
     Dates: start: 20230602

REACTIONS (1)
  - Myelosuppression [Recovering/Resolving]

NARRATIVE: CASE EVENT DATE: 20230611
